FAERS Safety Report 7310189-2 (Version None)
Quarter: 2011Q1

REPORT INFORMATION
  Report Type: 
  Country: None (occurrence: None)
  Receive Date: 20110224
  Receipt Date: 20110217
  Transmission Date: 20110831
  Serious: Yes (Death, Other)
  Sender: FDA-Public Use
  Company Number: US-ASTELLAS-2011US000744

PATIENT
  Age: 25 Year
  Sex: Female

DRUGS (3)
  1. POSACONAZOLE [Concomitant]
     Indication: ANTIFUNGAL PROPHYLAXIS
     Dosage: 400 MG, BID
     Route: 048
  2. AMBISOME [Suspect]
     Indication: FUNGAL INFECTION
     Dosage: 5 MG/KG, UID/QD
     Route: 042
  3. VORICONAZOLE [Concomitant]
     Indication: FUNGAL INFECTION
     Dosage: 300 MG, BID
     Route: 048

REACTIONS (2)
  - DRUG INEFFECTIVE [None]
  - SYSTEMIC MYCOSIS [None]
